FAERS Safety Report 4299917-0 (Version None)
Quarter: 2004Q1

REPORT INFORMATION
  Report Type: 
  Country: None (occurrence: None)
  Receive Date: 20040220
  Receipt Date: 20040212
  Transmission Date: 20041129
  Serious: Yes (Other)
  Sender: FDA-Public Use
  Company Number: 200410466EU

PATIENT
  Age: 73 Year
  Sex: Male

DRUGS (2)
  1. DOCETAXEL [Suspect]
     Indication: PROSTATE CANCER
     Route: 042
     Dates: start: 20040130, end: 20040130
  2. RISEDRONATE [Suspect]
     Indication: PROSTATE CANCER
     Route: 048

REACTIONS (3)
  - DIZZINESS [None]
  - FATIGUE [None]
  - LEUKOPENIA [None]
